FAERS Safety Report 6574472-0 (Version None)
Quarter: 2010Q1

REPORT INFORMATION
  Report Type: 
  Country: None (occurrence: None)
  Receive Date: 20100209
  Receipt Date: 20090908
  Transmission Date: 20100710
  Serious: No
  Sender: FDA-Public Use
  Company Number: A0802581A

PATIENT
  Age: 41 Year
  Sex: Male
  Weight: 79.5 kg

DRUGS (2)
  1. PAROXETINE HCL [Suspect]
     Indication: POST-TRAUMATIC STRESS DISORDER
     Dosage: 37.5MG PER DAY
     Route: 048
     Dates: start: 20090706, end: 20090810
  2. PRAZOSIN HYDROCHLORIDE [Suspect]
     Indication: POST-TRAUMATIC STRESS DISORDER
     Dosage: 1MG TWICE PER DAY
     Route: 048
     Dates: start: 20090714, end: 20090806

REACTIONS (2)
  - PRURITUS [None]
  - RASH MORBILLIFORM [None]
